FAERS Safety Report 23322482 (Version 1)
Quarter: 2023Q4

REPORT INFORMATION
  Report Type: Spontaneous
  Country: US (occurrence: None)
  Receive Date: 20231220
  Receipt Date: 20231220
  Transmission Date: 20240110
  Serious: No
  Sender: FDA-Public Use
  Company Number: None

PATIENT

DRUGS (3)
  1. DOBUTAMINE HYDROCHLORIDE IN DEXTROSE [Suspect]
     Active Substance: DEXTROSE MONOHYDRATE\DOBUTAMINE HYDROCHLORIDE
     Dosage: OTHER QUANTITY : 250ML CONTAINER SZ;?
  2. DOBUTAMINE HYDROCHLORIDE IN DEXTROSE [Suspect]
     Active Substance: DEXTROSE MONOHYDRATE\DOBUTAMINE HYDROCHLORIDE
     Dosage: OTHER QUANTITY : 250ML CONTAINER SZ;?
  3. DOBUTAMINE HYDROCHLORIDE IN DEXTROSE [Suspect]
     Active Substance: DEXTROSE MONOHYDRATE\DOBUTAMINE HYDROCHLORIDE
     Dosage: OTHER QUANTITY : 250ML CONTAINER SZ;?

REACTIONS (3)
  - Product packaging confusion [None]
  - Product label confusion [None]
  - Circumstance or information capable of leading to medication error [None]
